FAERS Safety Report 25352491 (Version 2)
Quarter: 2025Q2

REPORT INFORMATION
  Report Type: Spontaneous
  Country: TW (occurrence: TW)
  Receive Date: 20250523
  Receipt Date: 20250626
  Transmission Date: 20250716
  Serious: Yes (Other)
  Sender: REGENERON
  Company Number: TW-BAYER-2025A067057

PATIENT
  Age: 64 Year
  Sex: Male

DRUGS (2)
  1. EYLEA [Suspect]
     Active Substance: AFLIBERCEPT
     Indication: Age-related macular degeneration
     Dosage: 2 MG, Q4WK, OCULUS DEXTER, SOLUTION FOR INJECTION, 40 MG/ML
     Route: 031
     Dates: start: 20220615, end: 2023
  2. BEOVU [Concomitant]
     Active Substance: BROLUCIZUMAB-DBLL
     Indication: Antiangiogenic therapy
     Route: 031
     Dates: start: 20220615, end: 2024

REACTIONS (3)
  - Subretinal fluid [Not Recovered/Not Resolved]
  - Inappropriate schedule of product administration [Unknown]
  - Product prescribing issue [Unknown]

NARRATIVE: CASE EVENT DATE: 20220615
